FAERS Safety Report 6877249-1 (Version None)
Quarter: 2010Q3

REPORT INFORMATION
  Report Type: 
  Country: None (occurrence: None)
  Receive Date: 20100714
  Receipt Date: 20100629
  Transmission Date: 20110219
  Serious: Yes (Other)
  Sender: FDA-Public Use
  Company Number: WIL-007-10-GB

PATIENT
  Age: 22 Year
  Sex: Female

DRUGS (1)
  1. WILATE [Suspect]
     Indication: VON WILLEBRAND'S DISEASE
     Dosage: 1800 IU I.V.
     Route: 042
     Dates: start: 20100609, end: 20100609

REACTIONS (6)
  - BACK PAIN [None]
  - DRUG EXPOSURE DURING PREGNANCY [None]
  - DYSPNOEA [None]
  - INFUSION RELATED REACTION [None]
  - MOVEMENT DISORDER [None]
  - URTICARIA [None]
